FAERS Safety Report 12547667 (Version 2)
Quarter: 2016Q3

REPORT INFORMATION
  Report Type: Spontaneous
  Country: US (occurrence: US)
  Receive Date: 20160712
  Receipt Date: 20160819
  Transmission Date: 20161109
  Serious: No
  Sender: FDA-Public Use
  Company Number: US-ASTRAZENECA-2016SE74379

PATIENT
  Age: 70 Year
  Sex: Female

DRUGS (10)
  1. BUPROPION XL [Concomitant]
     Active Substance: BUPROPION
     Indication: ANXIETY
     Dosage: 300 MG TABLET ONCE EVERY MORNING BY MOUTH
     Route: 048
  2. BUPROPION XL [Concomitant]
     Active Substance: BUPROPION
     Indication: DEPRESSION
     Dosage: 300 MG TABLET ONCE EVERY MORNING BY MOUTH
     Route: 048
  3. LORAZEPAM. [Concomitant]
     Active Substance: LORAZEPAM
     Indication: ANXIETY
     Dosage: UNK, 3X/DAY (3 TABLETS PER DAY)
     Dates: start: 201508
  4. ASPIRIN. [Concomitant]
     Active Substance: ASPIRIN
     Indication: PAIN
     Dosage: 325 MG, AS NEEDED
     Route: 048
  5. CALCIUM D3 [Concomitant]
     Active Substance: CALCIUM\CHOLECALCIFEROL
     Indication: SUPPLEMENTATION THERAPY
     Dosage: [CALCIUM 600MG]/[COLECALCIFEROL 500 IU], 1 SOFT GEL, DAILY
     Route: 048
  6. DICYCLOMINE [Suspect]
     Active Substance: DICYCLOMINE HYDROCHLORIDE
     Indication: GASTRIC DISORDER
     Route: 048
     Dates: start: 2015
  7. CYPROHEPTADINE. [Concomitant]
     Active Substance: CYPROHEPTADINE
     Indication: PRURITUS
     Route: 048
  8. ACIDOPHILUS [Concomitant]
     Active Substance: LACTOBACILLUS ACIDOPHILUS
     Indication: DYSPEPSIA
     Dosage: 2 BILLION ACTIVE CULTURES, 1 TABLET EVERY NIGHT BY MOUTH
     Route: 048
  9. OXCARBAZEPINE. [Concomitant]
     Active Substance: OXCARBAZEPINE
     Indication: BIPOLAR DISORDER
     Dosage: 300 MG, 3 TABLETS
     Route: 048
  10. NEXIUM 24HR [Suspect]
     Active Substance: ESOMEPRAZOLE MAGNESIUM
     Indication: GASTROOESOPHAGEAL REFLUX DISEASE
     Dosage: 20 MG TABLET, 2 TABLETS EVERY MORNING BY MOUTH
     Route: 048

REACTIONS (10)
  - Decreased appetite [Not Recovered/Not Resolved]
  - Chest discomfort [Not Recovered/Not Resolved]
  - Vomiting [Recovered/Resolved]
  - Product use issue [Unknown]
  - Flatulence [Recovering/Resolving]
  - Fatigue [Not Recovered/Not Resolved]
  - Intentional product use issue [Unknown]
  - Muscle spasms [Recovering/Resolving]
  - Gastrointestinal disorder [Unknown]
  - Dyspepsia [Unknown]

NARRATIVE: CASE EVENT DATE: 20160611
